FAERS Safety Report 19789029 (Version 1)
Quarter: 2021Q3

REPORT INFORMATION
  Report Type: Spontaneous
  Country: FI (occurrence: FI)
  Receive Date: 20210904
  Receipt Date: 20210904
  Transmission Date: 20211014
  Serious: Yes (Other)
  Sender: FDA-Public Use
  Company Number: FI-ACCORD-237479

PATIENT
  Age: 45 Year
  Sex: Female

DRUGS (3)
  1. VAXZEVRIA [Suspect]
     Active Substance: AZD-1222
     Indication: PRODUCT USED FOR UNKNOWN INDICATION
     Dosage: 1,DF,X1
     Dates: start: 20210319, end: 20210319
  2. OXALIPLATIN ACCORD [Suspect]
     Active Substance: OXALIPLATIN
     Indication: PRODUCT USED FOR UNKNOWN INDICATION
     Route: 042
     Dates: end: 20210323
  3. CAPECITABINE. [Concomitant]
     Active Substance: CAPECITABINE
     Dosage: 3000,MG,DAILY
     Route: 048
     Dates: start: 20210115, end: 20210628

REACTIONS (2)
  - Thrombocytopenia [Unknown]
  - Liver disorder [Unknown]

NARRATIVE: CASE EVENT DATE: 20210327
